FAERS Safety Report 8592909-2 (Version None)
Quarter: 2012Q3

REPORT INFORMATION
  Report Type: 
  Country: None (occurrence: None)
  Receive Date: 20120814
  Receipt Date: 20120730
  Transmission Date: 20120928
  Serious: Yes (Other)
  Sender: FDA-Public Use
  Company Number: PL-ROCHE-1095094

PATIENT
  Age: 35 Year
  Sex: Female

DRUGS (12)
  1. XELODA [Suspect]
     Route: 048
     Dates: start: 20120401
  2. CYTOXAN [Concomitant]
  3. TRASTUZUMAB [Suspect]
     Indication: PRODUCT USED FOR UNKNOWN INDICATION
     Dates: start: 20080901
  4. XELODA [Suspect]
     Dosage: TREATMENT RESUMED AFTER 3 WEEKS .
     Route: 048
     Dates: start: 20110101, end: 20110701
  5. PACLITAXEL [Concomitant]
     Dates: start: 20100402
  6. XELODA [Suspect]
     Indication: PRODUCT USED FOR UNKNOWN INDICATION
     Route: 048
     Dates: start: 20100507
  7. XELODA [Suspect]
     Dosage: DOSE REDUCTION BY 10 PERCENT
     Route: 048
     Dates: start: 20100701, end: 20110401
  8. LAPATINIB [Concomitant]
  9. XELODA [Suspect]
     Dosage: 50 PERCENT REDUCED DOSE
     Route: 048
     Dates: start: 20111001, end: 20111201
  10. ADRIAMYCIN PFS [Concomitant]
  11. GOSERELIN [Concomitant]
  12. TRASTUZUMAB [Suspect]
     Dates: start: 20081101, end: 20091101

REACTIONS (8)
  - PARONYCHIA [None]
  - DIARRHOEA [None]
  - PALMAR-PLANTAR ERYTHRODYSAESTHESIA SYNDROME [None]
  - HERPES ZOSTER DISSEMINATED [None]
  - METASTASES TO CENTRAL NERVOUS SYSTEM [None]
  - METASTASIS [None]
  - BLOOD BILIRUBIN INCREASED [None]
  - NEUROLOGICAL SYMPTOM [None]
